FAERS Safety Report 15365107 (Version 1)
Quarter: 2018Q4

REPORT INFORMATION
  Report Type: Spontaneous
  Country: US (occurrence: US)
  Receive Date: 20180910
  Receipt Date: 20180910
  Transmission Date: 20190204
  Serious: Yes (Other)
  Sender: FDA-Public Use
  Company Number: US-VIVIMED-2017SP015286

PATIENT

DRUGS (1)
  1. METRONIDAZOLE. [Suspect]
     Active Substance: METRONIDAZOLE
     Indication: PRODUCT USED FOR UNKNOWN INDICATION
     Dosage: UNK
     Route: 064

REACTIONS (7)
  - Bradycardia neonatal [Recovered/Resolved]
  - Failure to thrive [Recovered/Resolved]
  - Toxicity to various agents [Recovered/Resolved]
  - Hypothermia neonatal [Recovered/Resolved]
  - Hypotonia [Recovered/Resolved]
  - Foetal exposure during pregnancy [Unknown]
  - Decreased activity [Recovered/Resolved]
